FAERS Safety Report 5716998-5 (Version None)
Quarter: 2008Q2

REPORT INFORMATION
  Report Type: 
  Country: None (occurrence: None)
  Receive Date: 20080424
  Receipt Date: 20080417
  Transmission Date: 20081010
  Serious: Yes (Disabling)
  Sender: FDA-Public Use
  Company Number: BE-ABBOTT-08P-013-0445909-00

PATIENT
  Sex: Male

DRUGS (1)
  1. LIPANTHYL MICRONIZED [Suspect]
     Indication: HYPERLIPIDAEMIA
     Dosage: 267 MG DAILY
     Route: 048
     Dates: start: 20080215, end: 20080408

REACTIONS (3)
  - DYSURIA [None]
  - MICTURITION URGENCY [None]
  - SLEEP DISORDER [None]
